FAERS Safety Report 18788529 (Version 1)
Quarter: 2021Q1

REPORT INFORMATION
  Report Type: Spontaneous
  Country: US (occurrence: US)
  Receive Date: 20210125
  Receipt Date: 20210125
  Transmission Date: 20210419
  Serious: No
  Sender: FDA-Public Use
  Company Number: US-ROCHE-2691589

PATIENT
  Sex: Female

DRUGS (1)
  1. RITUXAN [Suspect]
     Active Substance: RITUXIMAB
     Indication: HODGKIN^S DISEASE
     Route: 042
     Dates: start: 2010

REACTIONS (5)
  - Weight increased [Not Recovered/Not Resolved]
  - Neuropathy peripheral [Not Recovered/Not Resolved]
  - Off label use [Unknown]
  - Alopecia [Not Recovered/Not Resolved]
  - Intentional product use issue [Unknown]
